FAERS Safety Report 14796699 (Version 2)
Quarter: 2018Q3

REPORT INFORMATION
  Report Type: Report from Study
  Country: US (occurrence: US)
  Receive Date: 20180423
  Receipt Date: 20180720
  Transmission Date: 20181010
  Serious: No
  Sender: FDA-Public Use
  Company Number: US-AMGEN-USASL2018049576

PATIENT
  Age: 77 Year
  Sex: Female

DRUGS (1)
  1. REPATHA [Suspect]
     Active Substance: EVOLOCUMAB
     Indication: AMINO ACID METABOLISM DISORDER
     Dosage: UNK UNK, Q2WK
     Route: 065

REACTIONS (3)
  - Off label use [Unknown]
  - Injection site erythema [Unknown]
  - Nasopharyngitis [Unknown]
